FAERS Safety Report 5200843-0 (Version None)
Quarter: 2007Q1

REPORT INFORMATION
  Report Type: 
  Country: None (occurrence: None)
  Receive Date: 20070108
  Receipt Date: 20070102
  Transmission Date: 20070707
  Serious: Yes (Other)
  Sender: FDA-Public Use
  Company Number: PHEH2004US11591

PATIENT
  Age: 53 Year
  Sex: Female

DRUGS (22)
  1. ZOMETA [Suspect]
     Indication: METASTASES TO BONE
     Dosage: 4 MG, QMO
     Dates: start: 20010101
  2. ZOMETA [Suspect]
     Dosage: UNK, QW3
     Dates: start: 20040801
  3. ZOMETA [Suspect]
     Dosage: 4MG QW
     Dates: start: 20030129
  4. ZOMETA [Suspect]
     Dosage: 4MG Q3WK
     Dates: start: 20040225, end: 20050413
  5. AREDIA [Suspect]
     Indication: METASTASES TO BONE
     Dosage: 90MG Q4WK
     Dates: start: 19990812, end: 20020227
  6. OXYCONTIN [Concomitant]
     Indication: PAIN
     Dosage: 20MG BID
  7. LOTENSIN [Concomitant]
     Dosage: 20MG QD
  8. CELEXA [Concomitant]
     Indication: DEPRESSION
     Dosage: 20MG QD
  9. LASIX [Concomitant]
     Dosage: 40GM BID
  10. K-DUR 10 [Concomitant]
     Dosage: 20 MEQ BID
  11. FEMARA [Concomitant]
     Dosage: 2.5MG QD
     Dates: start: 20000915, end: 20030129
  12. HERCEPTIN [Concomitant]
     Dosage: 4MG/KG LOADING DOSE
     Dates: start: 19990801
  13. HERCEPTIN [Concomitant]
     Dosage: 2MG/KG, EVERY WEEK
  14. TAXOL [Concomitant]
     Indication: METASTASIS
     Dates: start: 20000421, end: 20000818
  15. NAVELBINE [Concomitant]
     Dosage: 30MG/M2 UNKDAY1,8
     Dates: start: 20030129, end: 20040204
  16. TAXOTERE [Concomitant]
     Indication: BREAST CANCER
     Dosage: 75MG/M2 Q3WK
     Route: 042
     Dates: start: 19990801, end: 20000818
  17. PREDNISONE TAB [Concomitant]
     Dosage: 5MG POST TAXOL INFUSION
  18. BENADRYL [Concomitant]
     Dates: start: 20000623
  19. CIMETIDINE HCL [Concomitant]
     Dates: start: 20000623
  20. TYLENOL W/ CODEINE [Concomitant]
     Indication: PAIN
     Dosage: UNK, PRN
  21. VACCINE BREAST CANCER PROTOCOL [Concomitant]
  22. XANAX [Concomitant]
     Indication: DEPRESSION

REACTIONS (36)
  - ANAEMIA [None]
  - ANXIETY [None]
  - BLOOD CREATININE INCREASED [None]
  - BONE DEBRIDEMENT [None]
  - BONE DISORDER [None]
  - BONE SWELLING [None]
  - CAPILLARY LEAK SYNDROME [None]
  - DENTAL OPERATION [None]
  - DYSPHAGIA [None]
  - ERYTHEMA [None]
  - EXOSTOSIS [None]
  - FALL [None]
  - FAMILY STRESS [None]
  - GASTROOESOPHAGEAL REFLUX DISEASE [None]
  - GINGIVAL DISORDER [None]
  - GINGIVAL RECESSION [None]
  - HAEMORRHAGE [None]
  - HYPERBARIC OXYGEN THERAPY [None]
  - IMPAIRED HEALING [None]
  - INFECTION [None]
  - METASTASES TO LUNG [None]
  - ORAL SOFT TISSUE DISORDER [None]
  - OSTEOMYELITIS [None]
  - OSTEONECROSIS [None]
  - PAIN [None]
  - PAIN IN JAW [None]
  - PATHOLOGICAL FRACTURE [None]
  - PLEURAL EFFUSION [None]
  - PRIMARY SEQUESTRUM [None]
  - ROTATOR CUFF SYNDROME [None]
  - SOFT TISSUE DISORDER [None]
  - SURGERY [None]
  - SWELLING [None]
  - TOOTH DISORDER [None]
  - TOOTH EXTRACTION [None]
  - TRISMUS [None]
